FAERS Safety Report 7355372-5 (Version None)
Quarter: 2011Q1

REPORT INFORMATION
  Report Type: 
  Country: None (occurrence: None)
  Receive Date: 20110316
  Receipt Date: 20110309
  Transmission Date: 20110831
  Serious: Yes (Other)
  Sender: FDA-Public Use
  Company Number: CA-ROCHE-764644

PATIENT
  Sex: Male

DRUGS (10)
  1. IRON [Concomitant]
  2. SULFASALAZINE [Concomitant]
  3. METRONIDAZOLE [Concomitant]
     Dates: start: 20110222
  4. PREDNISONE [Concomitant]
  5. HYDROCHLOROTHIAZIDE [Concomitant]
     Dosage: DRUG: HYDROCHLORIZIDE
  6. HYDROQUINONE [Concomitant]
     Dosage: DRUG: HYDROXYQUININE
  7. CALCIUM [Concomitant]
  8. TOCILIZUMAB [Suspect]
     Indication: RHEUMATOID ARTHRITIS
     Route: 042
     Dates: start: 20101202, end: 20110127
  9. ANAPRIL [Concomitant]
  10. ARTHROTEC [Concomitant]

REACTIONS (1)
  - FISTULA [None]
